FAERS Safety Report 4586886-9 (Version None)
Quarter: 2005Q1

REPORT INFORMATION
  Report Type: 
  Country: None (occurrence: None)
  Receive Date: 20050218
  Receipt Date: 20040707
  Transmission Date: 20050727
  Serious: Yes (Hospitalization)
  Sender: FDA-Public Use
  Company Number: PL-ROCHE-373707

PATIENT
  Age: 12 Year
  Sex: Female

DRUGS (22)
  1. MYCOPHENOLATE MOFETIL [Suspect]
     Route: 065
     Dates: start: 20040704, end: 20040813
  2. MYCOPHENOLATE MOFETIL [Suspect]
     Route: 065
     Dates: start: 20040813, end: 20040815
  3. MYCOPHENOLATE MOFETIL [Suspect]
     Route: 065
     Dates: start: 20040815, end: 20040821
  4. MYCOPHENOLATE MOFETIL [Suspect]
     Route: 065
     Dates: start: 20040822, end: 20040928
  5. MYCOPHENOLATE MOFETIL [Suspect]
     Route: 065
     Dates: start: 20040929, end: 20041020
  6. MYCOPHENOLATE MOFETIL [Suspect]
     Route: 065
     Dates: start: 20041021, end: 20041103
  7. MYCOPHENOLATE MOFETIL [Suspect]
     Route: 065
     Dates: start: 20041104
  8. CYCLOSPORINE [Suspect]
     Dosage: 125MG DOSE IN THE MORNING. ADJUSTMENT TO REACH PREDEFINED TARGET LEVELS.
     Route: 065
     Dates: start: 20040704
  9. METHYLPREDNISOLONE [Suspect]
     Dosage: DURING SURGERY
     Route: 065
     Dates: start: 20040704, end: 20040704
  10. METHYLPREDNISOLONE [Suspect]
     Dosage: TAPER ACCORDING TO LOCAL PROTOCOL
     Route: 065
     Dates: start: 20040704, end: 20040706
  11. METHYLPREDNISOLONE [Suspect]
     Dosage: TREATMENT FOR EVENT PROTEINURIA.
     Route: 065
     Dates: start: 20040707, end: 20040712
  12. METHYLPREDNISOLONE [Suspect]
     Dosage: TAPER ACCORDING TO LOCAL PROTOCOL
     Route: 065
     Dates: start: 20040803, end: 20040805
  13. METHYLPREDNISOLONE [Suspect]
     Dosage: ADVERSE EVENT.
     Route: 065
     Dates: start: 20040806, end: 20040810
  14. PREDNISONE [Suspect]
     Dosage: TAPER ACCORDING TO LOCAL PROTOCOL.
     Route: 065
     Dates: start: 20040713, end: 20040802
  15. PREDNISONE [Suspect]
     Dosage: TAPER BACK TO MAINTENANCE.
     Route: 065
     Dates: start: 20040818, end: 20040826
  16. PREDNISONE [Suspect]
     Dosage: TAPER ACCORDING TO LOCAL PROTOCOL.
     Route: 065
     Dates: start: 20040827
  17. CEFTRIAXONE [Concomitant]
     Indication: ANTIBACTERIAL PROPHYLAXIS
     Dates: start: 20040704, end: 20040712
  18. NIFEDIPINE [Concomitant]
     Dosage: ANTI-HYPERTENSIVE.
     Dates: start: 20040711, end: 20040711
  19. AMLODIPINE [Concomitant]
     Dosage: ANTI-HYPERTENSIVE.
     Dates: start: 20040711
  20. ACYCLOVIR [Concomitant]
     Indication: ANTIVIRAL PROPHYLAXIS
     Dosage: STOPPED ON THE 01 AUGUST 2004 AND GIVEN AGAIN ON 05 AUGUST 2004.
     Dates: start: 20040716, end: 20040805
  21. VARICELLA IMMUNE GLOBULIN [Concomitant]
     Indication: ANTIVIRAL PROPHYLAXIS
     Dosage: HUMAN GLOBULIN.
     Dates: start: 20040720, end: 20040720
  22. ACEBUTOLOL [Concomitant]
     Dosage: ANTI-HYPERTENSIVE.
     Dates: start: 20040723

REACTIONS (6)
  - ABDOMINAL PAIN [None]
  - CHOLECYSTITIS ACUTE [None]
  - HYPERKALAEMIA [None]
  - OLIGURIA [None]
  - POST PROCEDURAL BILE LEAK [None]
  - PROTEINURIA [None]
